FAERS Safety Report 13510149 (Version 1)
Quarter: 2017Q2

REPORT INFORMATION
  Report Type: Spontaneous
  Country: IE (occurrence: IE)
  Receive Date: 20170503
  Receipt Date: 20170503
  Transmission Date: 20170830
  Serious: Yes (Congenital Anomaly, Other)
  Sender: FDA-Public Use
  Company Number: IE-ABBVIE-17P-229-1961834-00

PATIENT
  Sex: Male

DRUGS (1)
  1. EPILIM [Suspect]
     Active Substance: VALPROATE SODIUM
     Indication: MATERNAL EXPOSURE TIMING UNSPECIFIED
     Route: 064

REACTIONS (11)
  - Dyspraxia [Unknown]
  - Memory impairment [Unknown]
  - Impaired quality of life [Unknown]
  - Intellectual disability [Unknown]
  - Disinhibition [Unknown]
  - Impulsive behaviour [Unknown]
  - Foetal anticonvulsant syndrome [Unknown]
  - Learning disorder [Unknown]
  - Cerebral palsy [Unknown]
  - Autism spectrum disorder [Unknown]
  - Foetal exposure during pregnancy [Unknown]
